FAERS Safety Report 4870398-9 (Version None)
Quarter: 2005Q4

REPORT INFORMATION
  Report Type: 
  Country: None (occurrence: None)
  Receive Date: 20051228
  Receipt Date: 20051216
  Transmission Date: 20060501
  Serious: Yes (Hospitalization, Other)
  Sender: FDA-Public Use
  Company Number: KII-2005-0020309

PATIENT
  Age: 45 Year
  Sex: Female

DRUGS (3)
  1. MORPHINE SULFATE [Suspect]
     Indication: PAIN MANAGEMENT
     Dosage: ORAL
     Route: 048
  2. ACETAMINOPHEN AND HYDROCODONE BITARTRATE [Suspect]
     Indication: PAIN MANAGEMENT
     Dosage: ORAL
     Route: 048
  3. BENZODIAZEPINE DERIVATIVES ( ) [Suspect]

REACTIONS (7)
  - BLOOD PH INCREASED [None]
  - BLOOD POTASSIUM DECREASED [None]
  - COMA [None]
  - HEART RATE INCREASED [None]
  - INTRACARDIAC THROMBUS [None]
  - MULTIPLE DRUG OVERDOSE [None]
  - PNEUMONIA ASPIRATION [None]
